FAERS Safety Report 14073073 (Version 2)
Quarter: 2018Q1

REPORT INFORMATION
  Report Type: Spontaneous
  Country: US (occurrence: US)
  Receive Date: 20171011
  Receipt Date: 20180330
  Transmission Date: 20180508
  Serious: Yes (Other)
  Sender: FDA-Public Use
  Company Number: US-ASTRAZENECA-2009UW09796

PATIENT
  Age: 18392 Day
  Sex: Female

DRUGS (1)
  1. ZOMIG [Suspect]
     Active Substance: ZOLMITRIPTAN
     Dosage: 1 DF, DAILY, MAY REPEAT 2 HOURS LATER; MAX 10 MG IN 24 HRS
     Route: 048
     Dates: start: 20090416

REACTIONS (5)
  - Viral infection [Unknown]
  - Bronchitis [Recovering/Resolving]
  - Oropharyngeal pain [Unknown]
  - Thyroiditis [Unknown]
  - Influenza [Recovering/Resolving]

NARRATIVE: CASE EVENT DATE: 20180317
